FAERS Safety Report 5409270-4 (Version None)
Quarter: 2007Q3

REPORT INFORMATION
  Report Type: 
  Country: None (occurrence: None)
  Receive Date: 20070809
  Receipt Date: 20070803
  Transmission Date: 20080115
  Serious: Yes (Other)
  Sender: FDA-Public Use
  Company Number: PHBS2007BR13071

PATIENT
  Age: 45 Year
  Sex: Female
  Weight: 48 kg

DRUGS (5)
  1. TOFRANIL [Suspect]
     Indication: RELAXATION THERAPY
     Dosage: 25 MG, BID
     Route: 048
     Dates: start: 20070801
  2. GARDAN TAB [Concomitant]
     Indication: EPILEPSY
     Dosage: 100 MG, BID
     Route: 048
  3. TENOXICAM [Concomitant]
     Indication: PROCEDURAL PAIN
     Dosage: 20 MG, BID
     Route: 048
  4. CYCLOBENZAPRINE HCL [Concomitant]
     Indication: PROCEDURAL PAIN
     Dosage: 10 MG, Q8H
     Route: 048
  5. RANITIDINE [Concomitant]
     Dosage: 150 MG, Q12H
     Route: 048

REACTIONS (4)
  - APHTHOUS STOMATITIS [None]
  - DYSKINESIA [None]
  - INSOMNIA [None]
  - SOMNOLENCE [None]
